FAERS Safety Report 15000497 (Version 1)
Quarter: 2018Q2

REPORT INFORMATION
  Report Type: Spontaneous
  Country: DE (occurrence: DE)
  Receive Date: 20180612
  Receipt Date: 20180612
  Transmission Date: 20180711
  Serious: Yes (Hospitalization)
  Sender: FDA-Public Use
  Company Number: DE-TEVA-2018-DE-905344

PATIENT
  Age: 77 Year
  Sex: Male

DRUGS (9)
  1. CALCIUM/COLECALCIFEROL [Concomitant]
     Active Substance: CALCIUM\CHOLECALCIFEROL
     Route: 065
  2. PANTOPRAZOL [Concomitant]
     Active Substance: PANTOPRAZOLE SODIUM
     Dosage: 40 MILLIGRAM DAILY;
     Route: 065
  3. PREDNISOLON [Suspect]
     Active Substance: PREDNISOLONE
     Dosage: 40 MILLIGRAM DAILY;
     Route: 065
  4. VIDAZA [Suspect]
     Active Substance: AZACITIDINE
     Route: 058
  5. ACTRAPID [Concomitant]
     Active Substance: INSULIN HUMAN
     Dosage: 0-6-8-0
     Route: 058
  6. TAMSULOSIN [Concomitant]
     Active Substance: TAMSULOSIN
     Dosage: .4 MILLIGRAM DAILY;
     Route: 065
  7. ACETYLSALICYLIC ACID [Concomitant]
     Active Substance: ASPIRIN
     Dosage: 100 MILLIGRAM DAILY;
     Route: 065
  8. FLUCONAZOL [Concomitant]
     Active Substance: FLUCONAZOLE
     Dosage: 200 MILLIGRAM DAILY;
     Route: 065
  9. ALLOPURINOL. [Concomitant]
     Active Substance: ALLOPURINOL
     Dosage: 300 MILLIGRAM DAILY;
     Route: 065

REACTIONS (4)
  - General physical health deterioration [Unknown]
  - Pyrexia [Unknown]
  - Dizziness [Unknown]
  - Asthenia [Unknown]
